FAERS Safety Report 13275551 (Version 1)
Quarter: 2017Q1

REPORT INFORMATION
  Report Type: Spontaneous
  Country: FR (occurrence: FR)
  Receive Date: 20170228
  Receipt Date: 20170228
  Transmission Date: 20170428
  Serious: Yes (Other)
  Sender: FDA-Public Use
  Company Number: FR-AUROBINDO-AUR-APL-2017-30135

PATIENT
  Age: 46 Year
  Sex: Male

DRUGS (3)
  1. VORICONAZOLE. [Suspect]
     Active Substance: VORICONAZOLE
     Indication: SYSTEMIC CANDIDA
     Route: 065
  2. MICAFUNGIN [Suspect]
     Active Substance: MICAFUNGIN
     Indication: SYSTEMIC CANDIDA
     Route: 065
  3. CASPOFUNGIN [Concomitant]
     Active Substance: CASPOFUNGIN
     Indication: SYSTEMIC CANDIDA
     Dosage: 70 MG, DAILY
     Route: 065

REACTIONS (1)
  - Drug resistance [Unknown]
